FAERS Safety Report 4402930-3 (Version None)
Quarter: 2004Q3

REPORT INFORMATION
  Report Type: 
  Country: None (occurrence: None)
  Receive Date: 20040721
  Receipt Date: 20030626
  Transmission Date: 20050211
  Serious: No
  Sender: FDA-Public Use
  Company Number: US-GLAXOSMITHKLINE-A0414189A

PATIENT
  Age: 50 Year
  Sex: Female

DRUGS (4)
  1. IMITREX [Suspect]
     Indication: MIGRAINE
     Route: 048
     Dates: start: 20021001
  2. IMITREX [Suspect]
     Route: 045
  3. METOCLOPRAMIDE [Concomitant]
  4. PREVACID [Concomitant]

REACTIONS (2)
  - DYSGEUSIA [None]
  - SOMNOLENCE [None]
